FAERS Safety Report 18956814 (Version 5)
Quarter: 2021Q2

REPORT INFORMATION
  Report Type: Report from Study
  Country: None (occurrence: DE)
  Receive Date: 20210301
  Receipt Date: 20210520
  Transmission Date: 20210717
  Serious: Yes (Hospitalization)
  Sender: FDA-Public Use
  Company Number: DE-ABBVIE-21K-062-3793249-00

PATIENT
  Age: 67 Year
  Sex: Male
  Weight: 73 kg

DRUGS (37)
  1. GABAPENTIN CT [Concomitant]
     Indication: PRODUCT USED FOR UNKNOWN INDICATION
     Dates: end: 20200603
  2. BACLOFEN DURA [Concomitant]
     Active Substance: BACLOFEN
     Indication: PRODUCT USED FOR UNKNOWN INDICATION
     Dates: end: 20191104
  3. PRAMIPEXOL [Concomitant]
     Active Substance: PRAMIPEXOLE
     Indication: PRODUCT USED FOR UNKNOWN INDICATION
     Dates: end: 20191104
  4. TOLPERISONE [Concomitant]
     Active Substance: TOLPERISONE
  5. OXYCODONE [Concomitant]
     Active Substance: OXYCODONE
     Indication: PRODUCT USED FOR UNKNOWN INDICATION
     Dosage: 40/20 MG
  6. IBUPROFEN. [Concomitant]
     Active Substance: IBUPROFEN
     Indication: PRODUCT USED FOR UNKNOWN INDICATION
  7. ACTIQ [Concomitant]
     Active Substance: FENTANYL CITRATE
     Dosage: IF  NEEDED
  8. ISENTRESS [Concomitant]
     Active Substance: RALTEGRAVIR POTASSIUM
     Indication: HIV INFECTION
     Route: 048
     Dates: start: 20171117
  9. RAMIPRIL. [Concomitant]
     Active Substance: RAMIPRIL
     Indication: CARDIOVASCULAR DISORDER
     Dates: end: 20200603
  10. IBUPROFEN. [Concomitant]
     Active Substance: IBUPROFEN
     Dosage: IF NEEDED
  11. EMTRICITABINA [Concomitant]
     Active Substance: EMTRICITABINE
     Indication: HIV INFECTION
  12. ZENTIVA [Concomitant]
     Indication: HIV INFECTION
     Dosage: DOSAGE: 1 UNKNOWN, 200 /245 MG
     Route: 048
     Dates: start: 20171117
  13. BACLOFEN DURA [Concomitant]
     Active Substance: BACLOFEN
  14. TOLPERISONE [Concomitant]
     Active Substance: TOLPERISONE
  15. OXYCODONE [Concomitant]
     Active Substance: OXYCODONE
     Dosage: 10/5 MG
  16. CLOPIDOGREL [Concomitant]
     Active Substance: CLOPIDOGREL BISULFATE
     Indication: CARDIOVASCULAR DISORDER
  17. METOPROLOLSUCCINAT AAA [Concomitant]
     Indication: CARDIOVASCULAR DISORDER
     Dates: end: 20200603
  18. AMLODIPIN 1A PHARMA GMBH [Concomitant]
     Active Substance: AMLODIPINE BESYLATE
     Indication: CARDIOVASCULAR DISORDER
     Dates: end: 20200603
  19. BACLOFEN DURA [Concomitant]
     Active Substance: BACLOFEN
     Dates: start: 20191104
  20. BERODUAL N [Concomitant]
     Active Substance: FENOTEROL HYDROBROMIDE\IPRATROPIUM BROMIDE
  21. OMEPRAZOL ABZ [Concomitant]
     Active Substance: OMEPRAZOLE
     Indication: PRODUCT USED FOR UNKNOWN INDICATION
  22. ACETYLSALICYLIC ACID [Concomitant]
     Active Substance: ASPIRIN
     Indication: CARDIOVASCULAR DISORDER
  23. ACTIQ [Concomitant]
     Active Substance: FENTANYL CITRATE
     Indication: PRODUCT USED FOR UNKNOWN INDICATION
     Dosage: IF NEEDED
  24. NICORETTE [Concomitant]
     Active Substance: NICOTINE
     Indication: PRODUCT USED FOR UNKNOWN INDICATION
     Dates: start: 20180904
  25. OXYCODONE [Concomitant]
     Active Substance: OXYCODONE
     Dates: start: 20180824
  26. IBUPROFEN. [Concomitant]
     Active Substance: IBUPROFEN
     Indication: PRODUCT USED FOR UNKNOWN INDICATION
     Dosage: IF NEEDED
  27. ZOPICLON [Concomitant]
     Active Substance: ZOPICLONE
  28. PREGABALIN 1A PHARMA [Concomitant]
     Active Substance: PREGABALIN
     Indication: PRODUCT USED FOR UNKNOWN INDICATION
     Dates: end: 20200603
  29. TOLPERISONE [Concomitant]
     Active Substance: TOLPERISONE
     Indication: PRODUCT USED FOR UNKNOWN INDICATION
     Dates: end: 20191104
  30. BERODUAL N [Concomitant]
     Active Substance: FENOTEROL HYDROBROMIDE\IPRATROPIUM BROMIDE
     Indication: PRODUCT USED FOR UNKNOWN INDICATION
     Dosage: IF NEEDED
  31. MAVIRET [Suspect]
     Active Substance: GLECAPREVIR\PIBRENTASVIR
     Indication: CHRONIC HEPATITIS C
     Dosage: 100 MG GLECAPREVIR/40 MG PIBRENTASVIR TABLETS, 3 TABLETS ONCE DAILY
     Route: 048
     Dates: start: 20180809, end: 20181003
  32. PRAMIPEXOL [Concomitant]
     Active Substance: PRAMIPEXOLE
     Dates: start: 20191104, end: 20201123
  33. MIRTAZAPIN [Concomitant]
     Active Substance: MIRTAZAPINE
     Indication: PRODUCT USED FOR UNKNOWN INDICATION
     Dates: end: 20200603
  34. ZOPICLON [Concomitant]
     Active Substance: ZOPICLONE
     Indication: PRODUCT USED FOR UNKNOWN INDICATION
  35. METOCLOPRAMIDE. [Concomitant]
     Active Substance: METOCLOPRAMIDE
     Indication: ADVERSE DRUG REACTION
     Dosage: IF NEEDED
     Dates: start: 20180824
  36. TORASEMID [Concomitant]
     Active Substance: TORSEMIDE
     Indication: CARDIOVASCULAR DISORDER
     Dates: end: 20201123
  37. TENOFOVIR [Concomitant]
     Active Substance: TENOFOVIR
     Indication: HIV INFECTION

REACTIONS (1)
  - Dyspnoea [Recovering/Resolving]

NARRATIVE: CASE EVENT DATE: 20210218
